FAERS Safety Report 19860679 (Version 1)
Quarter: 2021Q3

REPORT INFORMATION
  Report Type: Spontaneous
  Country: CN (occurrence: CN)
  Receive Date: 20210921
  Receipt Date: 20210921
  Transmission Date: 20211014
  Serious: Yes (Death, Other)
  Sender: FDA-Public Use
  Company Number: CN-ROCHE-2912155

PATIENT
  Age: 36 Year
  Sex: Female

DRUGS (23)
  1. MABTHERA [Suspect]
     Active Substance: RITUXIMAB
     Dosage: R?EPOCH
     Route: 065
     Dates: start: 20200108
  2. CYCLOPHOSPHAMIDE. [Concomitant]
     Active Substance: CYCLOPHOSPHAMIDE
     Dosage: R?EPOCH
     Dates: start: 20200108
  3. DOXORUBICIN [Concomitant]
     Active Substance: DOXORUBICIN
     Indication: DIFFUSE LARGE B-CELL LYMPHOMA
     Dosage: R?CHOP
     Dates: start: 20191210
  4. PLERIXAFOR [Concomitant]
     Active Substance: PLERIXAFOR
     Route: 058
     Dates: start: 20200819
  5. DEXAMETHASONE. [Concomitant]
     Active Substance: DEXAMETHASONE
     Dosage: R2?DHAP
     Dates: start: 20200927
  6. CISPLATIN. [Concomitant]
     Active Substance: CISPLATIN
     Dosage: R2?DHAP
     Dates: start: 20200927
  7. MABTHERA [Suspect]
     Active Substance: RITUXIMAB
     Dosage: R2?GDP
     Route: 065
     Dates: start: 20200902
  8. MABTHERA [Suspect]
     Active Substance: RITUXIMAB
     Dosage: R2?DHAP
     Route: 065
     Dates: start: 20200927
  9. CYCLOPHOSPHAMIDE. [Concomitant]
     Active Substance: CYCLOPHOSPHAMIDE
     Dosage: 3.5G/M2
     Dates: start: 20200624
  10. VINCRISTINE [Concomitant]
     Active Substance: VINCRISTINE
     Dosage: R?EPOCH
     Dates: start: 20200108
  11. CYCLOPHOSPHAMIDE. [Concomitant]
     Active Substance: CYCLOPHOSPHAMIDE
     Indication: DIFFUSE LARGE B-CELL LYMPHOMA
     Dosage: R?CHOP
     Dates: start: 20191210
  12. VINCRISTINE [Concomitant]
     Active Substance: VINCRISTINE
     Indication: DIFFUSE LARGE B-CELL LYMPHOMA
     Dosage: R?CHOP
     Dates: start: 20191210
  13. PREDNISONE. [Concomitant]
     Active Substance: PREDNISONE
     Indication: DIFFUSE LARGE B-CELL LYMPHOMA
     Dosage: R?CHOP
     Dates: start: 20191210
  14. PREDNISONE. [Concomitant]
     Active Substance: PREDNISONE
     Dosage: R?EPOCH
     Dates: start: 20200108
  15. DEXAMETHASONE. [Concomitant]
     Active Substance: DEXAMETHASONE
     Indication: DIFFUSE LARGE B-CELL LYMPHOMA
     Dosage: R2?GDP
     Dates: start: 20200902
  16. GRANULOCYTE COLONY STIMULATING FACTOR [Concomitant]
     Active Substance: GRANULOCYTE COLONY-STIMULATING FACTOR NOS
     Dates: start: 20200624
  17. GEMCITABINE. [Concomitant]
     Active Substance: GEMCITABINE
     Indication: DIFFUSE LARGE B-CELL LYMPHOMA
     Dosage: R2?GDP
     Dates: start: 20200902
  18. CISPLATIN. [Concomitant]
     Active Substance: CISPLATIN
     Indication: DIFFUSE LARGE B-CELL LYMPHOMA
     Dosage: R2?GDP
     Dates: start: 20200902
  19. CYTARABINE. [Concomitant]
     Active Substance: CYTARABINE
     Indication: DIFFUSE LARGE B-CELL LYMPHOMA
     Dosage: R2?DHAP
     Dates: start: 20200927
  20. MABTHERA [Suspect]
     Active Substance: RITUXIMAB
     Indication: DIFFUSE LARGE B-CELL LYMPHOMA
     Dosage: R?CHOP
     Route: 065
     Dates: start: 20191210
  21. DOXORUBICIN [Concomitant]
     Active Substance: DOXORUBICIN
     Dosage: R?EPOCH
     Dates: start: 20200108
  22. ETOPOSIDE. [Concomitant]
     Active Substance: ETOPOSIDE
     Indication: DIFFUSE LARGE B-CELL LYMPHOMA
     Dosage: R?EPOCH
     Dates: start: 20200108
  23. GRANULOCYTE COLONY STIMULATING FACTOR [Concomitant]
     Active Substance: GRANULOCYTE COLONY-STIMULATING FACTOR NOS
     Route: 058
     Dates: start: 20200815

REACTIONS (3)
  - Cytokine release syndrome [Recovering/Resolving]
  - Myelosuppression [Unknown]
  - Disease recurrence [Unknown]

NARRATIVE: CASE EVENT DATE: 20200330
